FAERS Safety Report 18914559 (Version 2)
Quarter: 2021Q1

REPORT INFORMATION
  Report Type: Report from Study
  Country: US (occurrence: US)
  Receive Date: 20210219
  Receipt Date: 20210305
  Transmission Date: 20210420
  Serious: Yes (Other)
  Sender: FDA-Public Use
  Company Number: US-TAKEDA-2021TUS009221

PATIENT
  Age: 42 Year
  Sex: Female

DRUGS (1)
  1. VEDOLIZUMAB [Suspect]
     Active Substance: VEDOLIZUMAB
     Indication: COLITIS ULCERATIVE
     Dosage: 300 MILLIGRAM
     Route: 042
     Dates: start: 202005

REACTIONS (3)
  - Pulmonary embolism [Unknown]
  - Fatigue [Unknown]
  - Thrombosis [Unknown]

NARRATIVE: CASE EVENT DATE: 202009
